FAERS Safety Report 15237512 (Version 2)
Quarter: 2018Q3

REPORT INFORMATION
  Report Type: Report from Study
  Country: AR (occurrence: AR)
  Receive Date: 20180803
  Receipt Date: 20180906
  Transmission Date: 20181010
  Serious: Yes (Other)
  Sender: FDA-Public Use
  Company Number: PHHY2018AR024727

PATIENT
  Age: 64 Year
  Sex: Female

DRUGS (4)
  1. LEVOTHYROXINE. [Concomitant]
     Active Substance: LEVOTHYROXINE
     Indication: PRODUCT USED FOR UNKNOWN INDICATION
     Dosage: 125 UG, UNK
     Route: 065
  2. COVERENE [Concomitant]
     Indication: PRODUCT USED FOR UNKNOWN INDICATION
     Dosage: 5 MG, UNK
     Route: 065
  3. SANDOSTATIN LAR DEPOT [Suspect]
     Active Substance: OCTREOTIDE ACETATE
     Indication: NEUROENDOCRINE TUMOUR
     Dosage: 30 MG, UNK (EVERY 28 DAYS)
     Route: 065
     Dates: start: 20160514
  4. AFINITOR [Suspect]
     Active Substance: EVEROLIMUS
     Indication: NEUROENDOCRINE TUMOUR
     Dosage: 10 MG, QD
     Route: 065
     Dates: start: 20180425, end: 20180610

REACTIONS (14)
  - Gastrointestinal disorder [Unknown]
  - Scratch [Recovered/Resolved]
  - General physical health deterioration [Recovered/Resolved]
  - Pruritus generalised [Recovered/Resolved]
  - Skin haemorrhage [Recovered/Resolved]
  - Stomatitis [Recovered/Resolved]
  - Bowel movement irregularity [Recovered/Resolved]
  - Drug intolerance [Unknown]
  - Diarrhoea [Unknown]
  - Neck pain [Recovered/Resolved]
  - Eating disorder [Recovered/Resolved]
  - Memory impairment [Unknown]
  - Faeces discoloured [Not Recovered/Not Resolved]
  - Oral pain [Recovered/Resolved]

NARRATIVE: CASE EVENT DATE: 201806
